FAERS Safety Report 13951698 (Version 2)
Quarter: 2018Q1

REPORT INFORMATION
  Report Type: Spontaneous
  Country: JP (occurrence: JP)
  Receive Date: 20170908
  Receipt Date: 20180220
  Transmission Date: 20180508
  Serious: Yes (Death, Other)
  Sender: FDA-Public Use
  Company Number: JP-TAKEDA-2017TJP018956

PATIENT
  Age: 65 Year
  Sex: Male
  Weight: 114 kg

DRUGS (3)
  1. ACTOS [Suspect]
     Active Substance: PIOGLITAZONE HYDROCHLORIDE
     Indication: DIABETES MELLITUS
     Dosage: 15 MG, BID
     Route: 048
     Dates: end: 20160216
  2. ADALAT [Concomitant]
     Active Substance: NIFEDIPINE
     Dosage: 20 MG, BID
     Route: 048
  3. ARTIST [Concomitant]
     Active Substance: CARVEDILOL
     Dosage: 10 MG, QD
     Route: 048

REACTIONS (1)
  - Ureteric cancer [Fatal]

NARRATIVE: CASE EVENT DATE: 20160216
